FAERS Safety Report 8487105-3 (Version None)
Quarter: 2012Q3

REPORT INFORMATION
  Report Type: 
  Country: None (occurrence: None)
  Receive Date: 20120704
  Receipt Date: 20120703
  Transmission Date: 20120928
  Serious: Yes (Hospitalization)
  Sender: FDA-Public Use
  Company Number: PHHY2012NL056876

PATIENT
  Sex: Male

DRUGS (3)
  1. ZOMETA [Suspect]
     Dosage: 4 MG / 100 ML FOR EVERY 28 DAYS
     Route: 042
     Dates: start: 20120515
  2. ZOMETA [Suspect]
     Dosage: 4 MG / 100 ML FOR EVERY 28 DAYS
     Route: 042
     Dates: start: 20120608
  3. ZOMETA [Suspect]
     Indication: PROSTATE CANCER
     Dosage: 4 MG / 100 ML FOR EVERY 28 DAYS
     Route: 042
     Dates: start: 20110610

REACTIONS (1)
  - BLOOD GLUCOSE INCREASED [None]
